FAERS Safety Report 5296036-1 (Version None)
Quarter: 2007Q2

REPORT INFORMATION
  Report Type: 
  Country: None (occurrence: None)
  Receive Date: 20070406
  Receipt Date: 20070326
  Transmission Date: 20071010
  Serious: Yes (Other)
  Sender: FDA-Public Use
  Company Number: 239082

PATIENT
  Age: 80 Year
  Sex: Female

DRUGS (1)
  1. AVASTIN [Suspect]
     Indication: MACULAR DEGENERATION
     Dosage: UNK, 1/MONTH, INTRAVITREAL

REACTIONS (1)
  - DRUG INEFFECTIVE [None]
